FAERS Safety Report 21836817 (Version 1)
Quarter: 2023Q1

REPORT INFORMATION
  Report Type: Spontaneous
  Country: CN (occurrence: CN)
  Receive Date: 20230109
  Receipt Date: 20230109
  Transmission Date: 20230417
  Serious: Yes (Death, Other)
  Sender: FDA-Public Use
  Company Number: CN-009507513-2301CHN000614

PATIENT
  Age: 57 Year
  Sex: Male
  Weight: 46 kg

DRUGS (4)
  1. CILASTATIN SODIUM\IMIPENEM [Suspect]
     Active Substance: CILASTATIN SODIUM\IMIPENEM
     Indication: Infection
     Dosage: 0.5G IMIPENEM AND 0.5G CILASTATIN SODIUM, QID
     Route: 041
     Dates: start: 20221213, end: 20221215
  2. CEFOPERAZONE\SULBACTAM [Concomitant]
     Active Substance: CEFOPERAZONE\SULBACTAM
     Indication: Infection
     Dosage: UNK
     Dates: start: 20221212
  3. ORNIDAZOLE [Concomitant]
     Active Substance: ORNIDAZOLE
     Indication: Infection
     Dosage: UNK
     Dates: start: 20221212
  4. VANCOMYCIN [Concomitant]
     Active Substance: VANCOMYCIN
     Indication: Infection
     Dosage: UNK
     Dates: start: 20221214

REACTIONS (2)
  - Cardio-respiratory arrest [Fatal]
  - Epilepsy [Unknown]

NARRATIVE: CASE EVENT DATE: 20221214
